FAERS Safety Report 18731092 (Version 2)
Quarter: 2021Q1

REPORT INFORMATION
  Report Type: Report from Study
  Country: US (occurrence: US)
  Receive Date: 20210112
  Receipt Date: 20210302
  Transmission Date: 20210419
  Serious: Yes (Other)
  Sender: FDA-Public Use
  Company Number: NVSC2021US004708

PATIENT
  Age: 48 Year
  Sex: Female

DRUGS (3)
  1. KESIMPTA [Suspect]
     Active Substance: OFATUMUMAB
     Indication: RELAPSING MULTIPLE SCLEROSIS
  2. KESIMPTA [Suspect]
     Active Substance: OFATUMUMAB
     Indication: MULTIPLE SCLEROSIS
     Dosage: 20 MG, QMO (SOLUTION,BENEATH THE SKIN,USUALLY VIA INJECTION)
     Route: 058
     Dates: start: 20210101
  3. KESIMPTA [Suspect]
     Active Substance: OFATUMUMAB
     Indication: DISEASE PROGRESSION

REACTIONS (3)
  - Pain [Recovered/Resolved]
  - Product distribution issue [Unknown]
  - Musculoskeletal stiffness [Unknown]

NARRATIVE: CASE EVENT DATE: 20210101
